FAERS Safety Report 23866935 (Version 1)
Quarter: 2024Q2

REPORT INFORMATION
  Report Type: Spontaneous
  Country: US (occurrence: US)
  Receive Date: 20240517
  Receipt Date: 20240517
  Transmission Date: 20240715
  Serious: Yes (Other)
  Sender: FDA-Public Use
  Company Number: US-ALVOGEN-2024092879

PATIENT
  Sex: Female

DRUGS (1)
  1. TERIPARATIDE [Suspect]
     Active Substance: TERIPARATIDE
     Indication: Osteoporosis
     Dosage: 250 MCG/ML DAILY; ONGOING, TIMES A DAY
     Route: 058
     Dates: start: 202307

REACTIONS (5)
  - Cardiac flutter [Unknown]
  - Vision blurred [Unknown]
  - Diplopia [Unknown]
  - Bowel movement irregularity [Unknown]
  - Tachycardia [Unknown]

NARRATIVE: CASE EVENT DATE: 20240101
